FAERS Safety Report 12203819 (Version 1)
Quarter: 2016Q1

REPORT INFORMATION
  Report Type: Spontaneous
  Country: US (occurrence: None)
  Receive Date: 20160322
  Receipt Date: 20160322
  Transmission Date: 20160526
  Serious: Yes (Other)
  Sender: FDA-Public Use
  Company Number: None

PATIENT
  Age: 46 Year
  Sex: Female
  Weight: 52.16 kg

DRUGS (4)
  1. CIPRO [Suspect]
     Active Substance: CIPROFLOXACIN HYDROCHLORIDE
     Indication: URINARY TRACT INFECTION
     Route: 048
     Dates: start: 20111111, end: 20111118
  2. NATURAL HORMONE REPLACEMENT THERAPY [Concomitant]
  3. ARMOUR [Concomitant]
  4. ZOMIG [Concomitant]
     Active Substance: ZOLMITRIPTAN

REACTIONS (7)
  - Tendon rupture [None]
  - Tendon discomfort [None]
  - Plantar fasciitis [None]
  - Muscle tightness [None]
  - Arthralgia [None]
  - Tinnitus [None]
  - Exercise tolerance decreased [None]

NARRATIVE: CASE EVENT DATE: 20111118
